FAERS Safety Report 18580846 (Version 1)
Quarter: 2020Q4

REPORT INFORMATION
  Report Type: Spontaneous
  Country: DK (occurrence: DK)
  Receive Date: 20201204
  Receipt Date: 20201204
  Transmission Date: 20210114
  Serious: Yes (Hospitalization)
  Sender: FDA-Public Use
  Company Number: DK-TEVA-2020-DK-1854387

PATIENT
  Age: 29 Year
  Sex: Female
  Weight: 113 kg

DRUGS (10)
  1. VENLAFAXIN ACTAVIS [Concomitant]
     Active Substance: VENLAFAXINE HYDROCHLORIDE
     Indication: ANXIETY
     Dosage: 150 MG
     Route: 048
     Dates: start: 20170908
  2. FOLIMET [Concomitant]
     Active Substance: FOLIC ACID
     Indication: VITAMIN SUPPLEMENTATION
     Dosage: 20 MG
     Route: 048
     Dates: start: 20190810
  3. IBUMETIN [Concomitant]
     Active Substance: IBUPROFEN
     Indication: ARTHRITIS
     Dosage: 400 MG ,DOSAGE: MAX 3 TIMES DAILY
     Route: 048
     Dates: start: 20190225, end: 20201019
  4. METFORMIN ACTAVIS [Concomitant]
     Active Substance: METFORMIN HYDROCHLORIDE
     Indication: TYPE 2 DIABETES MELLITUS
     Dosage: 2000 MG
     Route: 048
     Dates: start: 20190308, end: 20201019
  5. LIPISTAD [Concomitant]
     Indication: CARDIOVASCULAR EVENT PROPHYLAXIS
     Dosage: 40 MG
     Route: 048
     Dates: start: 20190308, end: 20201019
  6. PANODIL [Concomitant]
     Active Substance: ACETAMINOPHEN
     Indication: PAIN
     Dosage: 3000  MG
     Route: 048
     Dates: start: 20190225, end: 20201019
  7. ELOCON [Concomitant]
     Active Substance: MOMETASONE FUROATE
     Indication: PSORIASIS
     Dosage: 1 DF
     Route: 003
     Dates: start: 20190318
  8. COZAAR [Concomitant]
     Active Substance: LOSARTAN POTASSIUM
     Indication: HYPERTENSION
     Dosage: 50 MG
     Route: 048
     Dates: start: 20200402, end: 20201019
  9. EMTHEXATE [Suspect]
     Active Substance: METHOTREXATE
     Indication: PSORIASIS
     Dosage: 15 MG
     Route: 048
     Dates: start: 20191016, end: 20201019
  10. JARDIANCE [Interacting]
     Active Substance: EMPAGLIFLOZIN
     Indication: TYPE 2 DIABETES MELLITUS
     Dosage: 10 MG
     Route: 048
     Dates: start: 20200716

REACTIONS (2)
  - Liver injury [Unknown]
  - Drug interaction [Unknown]

NARRATIVE: CASE EVENT DATE: 20201019
